FAERS Safety Report 9675536 (Version 2)
Quarter: 2013Q4

REPORT INFORMATION
  Report Type: Spontaneous
  Country: FR (occurrence: FR)
  Receive Date: 20131107
  Receipt Date: 20131119
  Transmission Date: 20140711
  Serious: Yes (Other)
  Sender: FDA-Public Use
  Company Number: FR-009507513-1310FRA012692

PATIENT
  Age: 29 Year
  Sex: Female

DRUGS (8)
  1. VARNOLINE [Suspect]
     Indication: ORAL CONTRACEPTION
     Dosage: UNK
     Route: 048
     Dates: start: 200710
  2. HUMAN GROWTH HORMONE (1-43-NH2) [Suspect]
     Indication: HYPOPITUITARISM
     Dosage: UNK
     Route: 042
     Dates: start: 1985, end: 1991
  3. MAXOMAT [Suspect]
     Indication: HYPOPITUITARISM
     Dosage: UNK
     Dates: start: 1991, end: 1997
  4. RHINOFLUIMUCIL [Suspect]
     Indication: PRODUCT USED FOR UNKNOWN INDICATION
  5. ACTIFED LP ALLERGIC RHINITIS [Suspect]
     Indication: RHINITIS ALLERGIC
  6. HUMEX (ACETARSONE (+) AMYLOCAINE HYDROCHLORIDE (+) BENZODODECINIUM BRO [Suspect]
     Indication: RHINITIS ALLERGIC
  7. DESOBEL [Suspect]
     Indication: ORAL CONTRACEPTION
     Dosage: UNK
     Dates: start: 201106
  8. DIVINA (DROSPIRENONE (+) ETHINYL ESTRADIOL) [Suspect]
     Indication: ORAL CONTRACEPTION
     Dosage: UNK
     Dates: start: 201111

REACTIONS (1)
  - Pulmonary arterial hypertension [Not Recovered/Not Resolved]
